FAERS Safety Report 6020205-6 (Version None)
Quarter: 2008Q4

REPORT INFORMATION
  Report Type: 
  Country: None (occurrence: None)
  Receive Date: 20081223
  Receipt Date: 20081223
  Transmission Date: 20090506
  Serious: Yes (Other)
  Sender: FDA-Public Use
  Company Number: None

PATIENT
  Sex: Female
  Weight: 74.8435 kg

DRUGS (1)
  1. DEPO-PROVERA [Suspect]
     Indication: CONTRACEPTION
     Dosage: SHOT EVERY 3 MONTHS SQ
     Route: 058
     Dates: start: 20080515, end: 20081022

REACTIONS (10)
  - ANXIETY [None]
  - ARTHRALGIA [None]
  - COITAL BLEEDING [None]
  - CYSTITIS [None]
  - DIZZINESS [None]
  - DYSPAREUNIA [None]
  - DYSURIA [None]
  - INFLUENZA [None]
  - MALAISE [None]
  - MOOD SWINGS [None]
